FAERS Safety Report 18949648 (Version 1)
Quarter: 2021Q1

REPORT INFORMATION
  Report Type: Spontaneous
  Country: US (occurrence: US)
  Receive Date: 20210227
  Receipt Date: 20210227
  Transmission Date: 20210420
  Serious: No
  Sender: FDA-Public Use
  Company Number: US-TEVA-2021-US-1885868

PATIENT

DRUGS (1)
  1. DEXTROAMPHETAMINE. [Suspect]
     Active Substance: DEXTROAMPHETAMINE
     Indication: DISTURBANCE IN ATTENTION
     Route: 065

REACTIONS (2)
  - Product formulation issue [Unknown]
  - Drug ineffective [Unknown]
